FAERS Safety Report 17388882 (Version 2)
Quarter: 2020Q1

REPORT INFORMATION
  Report Type: Report from Study
  Country: None (occurrence: CA)
  Receive Date: 20200206
  Receipt Date: 20200226
  Transmission Date: 20200409
  Serious: Yes (Hospitalization)
  Sender: FDA-Public Use
  Company Number: CA-ABBVIE-20K-028-3265620-00

PATIENT
  Age: 66 Year
  Sex: Male
  Weight: 61.74 kg

DRUGS (1)
  1. HUMIRA [Suspect]
     Active Substance: ADALIMUMAB
     Indication: PSORIASIS
     Route: 058
     Dates: start: 20110426, end: 201706

REACTIONS (4)
  - Dizziness [Unknown]
  - Endocarditis staphylococcal [Recovered/Resolved]
  - Immune system disorder [Unknown]
  - Asthenia [Unknown]

NARRATIVE: CASE EVENT DATE: 2017
